FAERS Safety Report 6686537-3 (Version None)
Quarter: 2010Q2

REPORT INFORMATION
  Report Type: 
  Country: None (occurrence: None)
  Receive Date: 20100415
  Receipt Date: 20100401
  Transmission Date: 20101027
  Serious: Yes (Hospitalization, Disabling)
  Sender: FDA-Public Use
  Company Number: LVR-00195

PATIENT
  Sex: Female
  Weight: 43.5453 kg

DRUGS (1)
  1. LO/OVRAL-28 [Suspect]
     Indication: MIGRAINE
     Dates: end: 19850101

REACTIONS (47)
  - ACTIVITIES OF DAILY LIVING IMPAIRED [None]
  - ALOPECIA [None]
  - ANGER [None]
  - ANXIETY [None]
  - ASTHENIA [None]
  - ATROPHIC VULVOVAGINITIS [None]
  - AUTOIMMUNE THYROIDITIS [None]
  - BEDRIDDEN [None]
  - BLADDER DISORDER [None]
  - BLADDER PAIN [None]
  - BLINDNESS TRANSIENT [None]
  - CATATONIA [None]
  - CHEST PAIN [None]
  - CONVULSION [None]
  - DENTAL CARIES [None]
  - DISTURBANCE IN ATTENTION [None]
  - DRUG INEFFECTIVE [None]
  - DRY MOUTH [None]
  - ENDOMETRIOSIS [None]
  - FALL [None]
  - GASTROINTESTINAL DISORDER [None]
  - GINGIVAL DISORDER [None]
  - IMPAIRED DRIVING ABILITY [None]
  - INSOMNIA [None]
  - JOINT DISLOCATION [None]
  - MENOPAUSAL DISORDER [None]
  - MIGRAINE [None]
  - MOUTH HAEMORRHAGE [None]
  - MUSCLE ATROPHY [None]
  - OFF LABEL USE [None]
  - ORAL DISCOMFORT [None]
  - ORAL DISORDER [None]
  - PAIN IN JAW [None]
  - PALPITATIONS [None]
  - PSYCHOTIC DISORDER [None]
  - RASH [None]
  - REFUSAL OF TREATMENT BY PATIENT [None]
  - SCREAMING [None]
  - SKIN ATROPHY [None]
  - SLEEP DISORDER [None]
  - SPINAL FRACTURE [None]
  - TOOTH DISORDER [None]
  - TOOTH EROSION [None]
  - TREMOR [None]
  - ULCER [None]
  - UTERINE LEIOMYOMA [None]
  - WEIGHT DECREASED [None]
